FAERS Safety Report 25482745 (Version 2)
Quarter: 2025Q3

REPORT INFORMATION
  Report Type: Report from Study
  Country: JP (occurrence: JP)
  Receive Date: 20250626
  Receipt Date: 20250801
  Transmission Date: 20251020
  Serious: Yes (Life-Threatening, Other)
  Sender: ROCHE
  Company Number: JP-ROCHE-10000322423

PATIENT
  Age: 76 Year
  Sex: Male

DRUGS (3)
  1. TOCILIZUMAB [Suspect]
     Active Substance: TOCILIZUMAB
     Indication: VEXAS syndrome
     Route: 042
  2. PREDNISOLONE [Suspect]
     Active Substance: PREDNISOLONE
     Indication: VEXAS syndrome
     Route: 065
  3. PREDNISOLONE [Suspect]
     Active Substance: PREDNISOLONE
     Route: 065

REACTIONS (5)
  - COVID-19 pneumonia [Unknown]
  - Pneumonia [Unknown]
  - Mycobacterial infection [Unknown]
  - Arthritis bacterial [Unknown]
  - Off label use [Unknown]
